FAERS Safety Report 8026557 (Version 5)
Quarter: 2012Q4

REPORT INFORMATION
  Report Type: 
  Country: US (occurrence: US)
  Receive Date: 20110708
  Receipt Date: 20121102
  Transmission Date: 20130627
  Serious: Yes (Hospitalization, Other)
  Sender: FDA-Public Use
  Company Number: US-ROCHE-787389

PATIENT
  Age: 38 None
  Sex: Female
  Weight: 62.2 kg

DRUGS (1)
  1. ACCUTANE [Suspect]
     Indication: PRODUCT USED FOR UNKNOWN INDICATION
     Route: 065

REACTIONS (7)
  - Nephrolithiasis [Unknown]
  - Irritable bowel syndrome [Unknown]
  - Injury [Unknown]
  - Depression [Unknown]
  - Bipolar disorder [Unknown]
  - Suicidal ideation [Unknown]
  - Attention deficit/hyperactivity disorder [Unknown]
